FAERS Safety Report 9876237 (Version 2)
Quarter: 2015Q1

REPORT INFORMATION
  Report Type: Spontaneous
  Country: SE (occurrence: SE)
  Receive Date: 20140206
  Receipt Date: 20150127
  Transmission Date: 20150721
  Serious: Yes (Other)
  Sender: FDA-Public Use
  Company Number: PHHY2014SE013622

PATIENT
  Age: 57 Year
  Sex: Female

DRUGS (2)
  1. BEHEPAN//CYANOCOBALAMIN [Concomitant]
     Active Substance: CYANOCOBALAMIN
     Indication: PRODUCT USED FOR UNKNOWN INDICATION
     Dosage: UNK
     Route: 065
  2. ACLASTA [Suspect]
     Active Substance: ZOLEDRONIC ACID
     Indication: OSTEOPOROSIS
     Dosage: UNK
     Route: 042
     Dates: start: 20131216, end: 20131216

REACTIONS (4)
  - Conjunctivitis [Unknown]
  - Pyrexia [Unknown]
  - Myalgia [Unknown]
  - Syncope [Unknown]

NARRATIVE: CASE EVENT DATE: 20131217
